FAERS Safety Report 11831595 (Version 2)
Quarter: 2015Q4

REPORT INFORMATION
  Report Type: Report from Study
  Country: CN (occurrence: CN)
  Receive Date: 20151214
  Receipt Date: 20151225
  Transmission Date: 20160305
  Serious: Yes (Hospitalization)
  Sender: FDA-Public Use
  Company Number: CN-AMGEN-CHNCT2015133355

PATIENT
  Age: 24 Year
  Sex: Female

DRUGS (4)
  1. IBUPROFEN. [Concomitant]
     Active Substance: IBUPROFEN
     Dosage: 300 MG, UNK
     Dates: start: 20151203
  2. ROMIPLOSTIM [Suspect]
     Active Substance: ROMIPLOSTIM
     Indication: IMMUNE THROMBOCYTOPENIC PURPURA
     Dosage: 6 MUG/KG, UNK
     Route: 065
     Dates: start: 20151106, end: 20151211
  3. CEFTAZIDIME. [Concomitant]
     Active Substance: CEFTAZIDIME
     Dosage: 2 G, Q8H
     Route: 042
     Dates: start: 20151201, end: 20151205
  4. DEXAMETHASONE. [Concomitant]
     Active Substance: DEXAMETHASONE
     Dosage: 3 MG, UNK
     Route: 065
     Dates: start: 20151202

REACTIONS (1)
  - Haemorrhagic anaemia [Unknown]

NARRATIVE: CASE EVENT DATE: 20151201
